FAERS Safety Report 24400682 (Version 2)
Quarter: 2025Q1

REPORT INFORMATION
  Report Type: Spontaneous
  Country: US (occurrence: US)
  Receive Date: 20241006
  Receipt Date: 20250116
  Transmission Date: 20250408
  Serious: No
  Sender: SANOFI AVENTIS
  Company Number: US-SA-2024SA281814

PATIENT
  Age: 9 Year
  Sex: Female

DRUGS (1)
  1. DUPIXENT [Suspect]
     Active Substance: DUPILUMAB
     Indication: Eczema herpeticum
     Dosage: 200 MG, QOW
     Route: 058

REACTIONS (4)
  - Eczema [Unknown]
  - Pruritus [Unknown]
  - Injection site reaction [Unknown]
  - Product use in unapproved indication [Unknown]
